FAERS Safety Report 14102798 (Version 1)
Quarter: 2017Q4

REPORT INFORMATION
  Report Type: Report from Study
  Country: US (occurrence: BR)
  Receive Date: 20171018
  Receipt Date: 20171018
  Transmission Date: 20180321
  Serious: Yes (Other)
  Sender: FDA-Public Use
  Company Number: US-SUNOVION-2017SUN004506

PATIENT
  Sex: Female
  Weight: 54 kg

DRUGS (1)
  1. INDACATEROL AND GLYCOPYRROLATE [Suspect]
     Active Substance: GLYCOPYRROLATE\INDACATEROL MALEATE
     Indication: EMPHYSEMA
     Dosage: UNK, QD
     Route: 055

REACTIONS (5)
  - Swelling [Recovering/Resolving]
  - Blood pressure inadequately controlled [Recovering/Resolving]
  - Anxiety [Recovering/Resolving]
  - Visual impairment [Unknown]
  - Depressed mood [Recovering/Resolving]
